FAERS Safety Report 4405566-3 (Version None)
Quarter: 2004Q3

REPORT INFORMATION
  Report Type: 
  Country: None (occurrence: None)
  Receive Date: 20040723
  Receipt Date: 20030930
  Transmission Date: 20050211
  Serious: Yes (Other)
  Sender: FDA-Public Use
  Company Number: US-GLAXOSMITHKLINE-A0428044A

PATIENT
  Age: 83 Year
  Sex: Female
  Weight: 51.8 kg

DRUGS (10)
  1. AVANDIA [Suspect]
     Dosage: 4MG TWICE PER DAY
     Route: 048
  2. GLUCOTROL XL [Concomitant]
     Dosage: 2.5MG PER DAY
     Route: 048
     Dates: start: 20010101
  3. PRECOSE [Concomitant]
     Dosage: 50MG THREE TIMES PER DAY
     Route: 048
     Dates: start: 20010101
  4. DIGOXIN [Concomitant]
     Indication: ATRIAL FIBRILLATION
     Dosage: .125MG PER DAY
     Route: 048
     Dates: start: 20010101
  5. ISORDIL [Concomitant]
     Indication: CORONARY ARTERY DISEASE
     Dosage: 10MG THREE TIMES PER DAY
     Route: 048
     Dates: start: 20010101
  6. METOPROLOL [Concomitant]
     Indication: HYPERTENSION
     Dosage: 25MG TWICE PER DAY
     Route: 048
     Dates: start: 20010101
  7. ZOCOR [Concomitant]
     Indication: BLOOD CHOLESTEROL INCREASED
     Dosage: 40MG PER DAY
     Route: 048
     Dates: start: 20010101
  8. WARFARIN SODIUM [Concomitant]
     Indication: ATRIAL FIBRILLATION
     Route: 048
     Dates: start: 20010101
  9. LISINOPRIL [Concomitant]
     Indication: HYPERTENSION
     Dosage: 2.5MG PER DAY
     Route: 048
     Dates: start: 20020214
  10. FOLIC ACID [Concomitant]
     Indication: CORONARY ARTERY DISEASE
     Dosage: .8MG PER DAY
     Route: 048
     Dates: start: 20020819

REACTIONS (1)
  - PLEURAL EFFUSION [None]
